FAERS Safety Report 20532093 (Version 1)
Quarter: 2022Q1

REPORT INFORMATION
  Report Type: Spontaneous
  Country: US (occurrence: US)
  Receive Date: 20220301
  Receipt Date: 20220301
  Transmission Date: 20220424
  Serious: No
  Sender: FDA-Public Use
  Company Number: US-AMRYT PHARMACEUTICALS DAC-AEGR005085

PATIENT
  Age: 3 Year
  Sex: Female
  Weight: 15.8 kg

DRUGS (11)
  1. MYALEPT [Suspect]
     Active Substance: METRELEPTIN
     Indication: Congenital generalised lipodystrophy
     Dosage: 0.15 MILLILITER, QD
     Route: 058
     Dates: start: 20210121, end: 20210203
  2. MYALEPT [Suspect]
     Active Substance: METRELEPTIN
     Dosage: 0.15 MILLILITER, QD
  3. MYALEPT [Suspect]
     Active Substance: METRELEPTIN
     Dosage: 0.6 MILLIGRAM/KILOGRAM, QD
     Route: 058
  4. MYALEPT [Suspect]
     Active Substance: METRELEPTIN
     Dosage: 0.3 ML (1.5 MG) QD
     Route: 058
     Dates: start: 20210121
  5. MYALEPT [Suspect]
     Active Substance: METRELEPTIN
     Dosage: 0.1 MG/KG, QD
     Route: 058
     Dates: start: 20201210
  6. MYALEPT [Suspect]
     Active Substance: METRELEPTIN
     Dosage: 0.05 MG/KG, QD
     Route: 058
     Dates: start: 20210201
  7. MYALEPT [Suspect]
     Active Substance: METRELEPTIN
     Dosage: 0.09 MG/KG
  8. MYALEPT [Suspect]
     Active Substance: METRELEPTIN
     Dosage: 0.1 MG/KG
  9. MIRALAX [Concomitant]
     Active Substance: POLYETHYLENE GLYCOL 3350
     Indication: Product used for unknown indication
     Dosage: 17G/DOSE
  10. BACTERIOSTATIC WATER [Concomitant]
     Active Substance: WATER
     Indication: Product used for unknown indication
  11. LIDOCAINE PRILOCAINE BIOGARAN [Concomitant]
     Indication: Product used for unknown indication

REACTIONS (8)
  - Blood glucose increased [Unknown]
  - Blood triglycerides increased [Not Recovered/Not Resolved]
  - Weight increased [Recovered/Resolved]
  - Glycosylated haemoglobin increased [Not Recovered/Not Resolved]
  - No adverse event [Unknown]
  - Intentional product use issue [Unknown]
  - Product use issue [Unknown]
  - Therapy interrupted [Unknown]

NARRATIVE: CASE EVENT DATE: 20210203
